FAERS Safety Report 7818541-3 (Version None)
Quarter: 2011Q4

REPORT INFORMATION
  Report Type: 
  Country: None (occurrence: None)
  Receive Date: 20111017
  Receipt Date: 20111006
  Transmission Date: 20120403
  Serious: Yes (Hospitalization, Disabling, Other)
  Sender: FDA-Public Use
  Company Number: US-ASTRAZENECA-2011SE59900

PATIENT
  Sex: Female

DRUGS (12)
  1. PRILOSEC [Suspect]
     Route: 048
     Dates: start: 20090101
  2. MAGNESIUM HYDROXIDE TAB [Suspect]
     Route: 065
  3. FUROSEMIDE [Concomitant]
  4. LOVASTATIN [Concomitant]
  5. ASPIRIN [Concomitant]
     Route: 065
  6. AMOXICILLIN [Suspect]
     Route: 065
  7. PRILOSEC [Suspect]
     Route: 048
     Dates: start: 20090901, end: 20090901
  8. PEPCID [Suspect]
     Route: 065
     Dates: start: 20090701
  9. SPIRONOLACTONE [Concomitant]
  10. DOCUSATE [Concomitant]
  11. LISINOPRIL [Concomitant]
     Indication: HYPERTENSION
  12. PLAVIX [Concomitant]

REACTIONS (12)
  - ADVERSE DRUG REACTION [None]
  - DYSPEPSIA [None]
  - DRUG INTOLERANCE [None]
  - ELECTROLYTE IMBALANCE [None]
  - ABDOMINAL PAIN UPPER [None]
  - DRUG INEFFECTIVE [None]
  - DRUG HYPERSENSITIVITY [None]
  - DEHYDRATION [None]
  - MALAISE [None]
  - DECREASED APPETITE [None]
  - APHAGIA [None]
  - ABDOMINAL DISCOMFORT [None]
